FAERS Safety Report 26208406 (Version 1)
Quarter: 2025Q4

REPORT INFORMATION
  Report Type: Spontaneous
  Country: US (occurrence: None)
  Receive Date: 20251227
  Receipt Date: 20251227
  Transmission Date: 20260118
  Serious: No
  Sender: FDA-CTU
  Company Number: None

PATIENT
  Age: 13 Year
  Sex: Female

DRUGS (1)
  1. OASIS TEARS [Suspect]
     Active Substance: GLYCERIN

REACTIONS (5)
  - Ocular discomfort [None]
  - Eye pain [None]
  - Ocular hyperaemia [None]
  - Abnormal sensation in eye [None]
  - Expired product administered [None]
